FAERS Safety Report 9967730 (Version 1)
Quarter: 2014Q1

REPORT INFORMATION
  Report Type: Report from Study
  Country: US (occurrence: US)
  Receive Date: 20140306
  Receipt Date: 20140306
  Transmission Date: 20141002
  Serious: No
  Sender: FDA-Public Use
  Company Number: US-ABBVIE-13P-163-1143628-00

PATIENT
  Age: 29 Year
  Sex: Female

DRUGS (5)
  1. HUMIRA [Suspect]
     Indication: PSORIATIC ARTHROPATHY
     Dates: start: 20120109, end: 20121107
  2. SYNTHROID [Concomitant]
     Indication: THYROID DISORDER
  3. B 12 INJECTIONS [Concomitant]
     Indication: PRODUCT USED FOR UNKNOWN INDICATION
  4. B 12 INJECTIONS [Concomitant]
     Dates: start: 201308
  5. DIFLOFENAC [Concomitant]
     Indication: PRODUCT USED FOR UNKNOWN INDICATION

REACTIONS (4)
  - Injection site bruising [Recovered/Resolved]
  - Injection site pain [Not Recovered/Not Resolved]
  - Psoriasis [Unknown]
  - Psoriatic arthropathy [Unknown]
